FAERS Safety Report 24129915 (Version 1)
Quarter: 2024Q3

REPORT INFORMATION
  Report Type: Spontaneous
  Country: FR (occurrence: FR)
  Receive Date: 20240724
  Receipt Date: 20240724
  Transmission Date: 20241016
  Serious: Yes (Congenital Anomaly)
  Sender: ABBVIE
  Company Number: None

PATIENT
  Sex: Female
  Weight: 2.7 kg

DRUGS (13)
  1. CREON [Suspect]
     Active Substance: PANCRELIPASE AMYLASE\PANCRELIPASE LIPASE\PANCRELIPASE PROTEASE
     Indication: Maternal exposure timing unspecified
     Route: 064
  2. SPIRIVA RESPIMAT [Suspect]
     Active Substance: TIOTROPIUM BROMIDE
     Indication: Maternal exposure timing unspecified
     Route: 064
  3. PULMOZYME [Suspect]
     Active Substance: DORNASE ALFA
     Indication: Maternal exposure timing unspecified
     Route: 064
  4. KALYDECO [Suspect]
     Active Substance: IVACAFTOR
     Indication: Maternal exposure timing unspecified
     Route: 064
  5. ALBUTEROL [Suspect]
     Active Substance: ALBUTEROL
     Indication: Maternal exposure timing unspecified
     Route: 064
  6. ESOMEPRAZOLE [Suspect]
     Active Substance: ESOMEPRAZOLE
     Indication: Maternal exposure timing unspecified
     Route: 064
  7. COLISTIMETHATE SODIUM [Suspect]
     Active Substance: COLISTIMETHATE SODIUM
     Indication: Maternal exposure timing unspecified
     Route: 064
  8. AMBROXOL HYDROCHLORIDE [Suspect]
     Active Substance: AMBROXOL HYDROCHLORIDE
     Indication: Maternal exposure timing unspecified
     Route: 064
  9. INNOVAIR [Suspect]
     Active Substance: BECLOMETHASONE DIPROPIONATE\FORMOTEROL
     Indication: Maternal exposure timing unspecified
     Route: 064
  10. PANCRELIPASE [Suspect]
     Active Substance: PANCRELIPASE
     Indication: Maternal exposure timing unspecified
     Route: 064
  11. SINGULAIR [Suspect]
     Active Substance: MONTELUKAST SODIUM
     Indication: Maternal exposure timing unspecified
     Route: 064
  12. CETIRIZINE [Suspect]
     Active Substance: CETIRIZINE HYDROCHLORIDE
     Indication: Maternal exposure timing unspecified
     Route: 064
  13. ELEXACAFTOR\IVACAFTOR\TEZACAFTOR [Suspect]
     Active Substance: ELEXACAFTOR\IVACAFTOR\TEZACAFTOR
     Indication: Maternal exposure timing unspecified
     Route: 064

REACTIONS (3)
  - Amniotic fluid index increased [Not Recovered/Not Resolved]
  - Foetal macrosomia [Not Recovered/Not Resolved]
  - Foetal exposure during pregnancy [Unknown]

NARRATIVE: CASE EVENT DATE: 20240606
